FAERS Safety Report 6265743-6 (Version None)
Quarter: 2009Q3

REPORT INFORMATION
  Report Type: 
  Country: None (occurrence: None)
  Receive Date: 20090709
  Receipt Date: 20090709
  Transmission Date: 20100115
  Serious: Yes (Hospitalization)
  Sender: FDA-Public Use
  Company Number: None

PATIENT
  Age: 56 Year
  Sex: Male
  Weight: 62.1428 kg

DRUGS (1)
  1. SORAFENIB [Suspect]
     Dosage: SORAFENIB, 400 MG BID
     Dates: start: 20090419, end: 20090513

REACTIONS (7)
  - ABDOMINAL PAIN [None]
  - CONSTIPATION [None]
  - HAEMOPTYSIS [None]
  - METASTASES TO CENTRAL NERVOUS SYSTEM [None]
  - METASTATIC NEOPLASM [None]
  - MUSCULOSKELETAL CHEST PAIN [None]
  - NAUSEA [None]
